FAERS Safety Report 4353870-X (Version None)
Quarter: 2004Q2

REPORT INFORMATION
  Report Type: 
  Country: None (occurrence: None)
  Receive Date: 20040503
  Receipt Date: 20040423
  Transmission Date: 20050107
  Serious: Yes (Death, Hospitalization, Disabling)
  Sender: FDA-Public Use
  Company Number: 2004-04-0087

PATIENT
  Age: 18 Year
  Sex: Male

DRUGS (16)
  1. INTRON A [Suspect]
     Indication: HEPATITIS B
     Dosage: 3 MU TIW SUBCUTANEOUS
     Route: 058
     Dates: start: 20031203, end: 20040206
  2. ZEFFIX (LAMIVUDINE) [Concomitant]
  3. SEMPREX 1-2 TABS [Concomitant]
  4. ASCORUTIN [Concomitant]
  5. CLARITHROMYCIN [Concomitant]
  6. VITAMINS/MINERALS/DIETARY SUPPLEMENTS (NOS) [Concomitant]
  7. CEDAX [Concomitant]
  8. FUROSEMIDE [Concomitant]
  9. ASPARTIC ACID [Concomitant]
  10. SPRINOLOLACTONE [Concomitant]
  11. BARALGIN [Concomitant]
  12. URSO FALK [Concomitant]
  13. IMURAN [Concomitant]
  14. CIPROFLOXACIN [Concomitant]
  15. AMOXICILLIN AND CLAVULANATE POTASSIUM [Concomitant]
  16. PREDNISOLONE [Concomitant]

REACTIONS (8)
  - ASCITES [None]
  - AUTOIMMUNE HEPATITIS [None]
  - CRYOGLOBULINS PRESENT [None]
  - HEPATOSPLENOMEGALY [None]
  - HYPERBILIRUBINAEMIA [None]
  - HYPERGAMMAGLOBULINAEMIA [None]
  - LEUKOPENIA [None]
  - VASCULITIS [None]
